FAERS Safety Report 10378246 (Version 3)
Quarter: 2014Q3

REPORT INFORMATION
  Report Type: Report from Study
  Country: BR (occurrence: BR)
  Receive Date: 20140812
  Receipt Date: 20140917
  Transmission Date: 20150326
  Serious: Yes (Death, Hospitalization)
  Sender: FDA-Public Use
  Company Number: BR-BAYER-2014-114616

PATIENT
  Age: 78 Year
  Sex: Female

DRUGS (2)
  1. NEXAVAR [Suspect]
     Active Substance: SORAFENIB
     Indication: HEPATIC CANCER STAGE IV
     Dosage: UNK
     Route: 048
     Dates: end: 20140722
  2. NEXAVAR [Suspect]
     Active Substance: SORAFENIB
     Indication: METASTASES TO LUNG

REACTIONS (7)
  - Metastases to lung [Fatal]
  - Bladder pain [Unknown]
  - Dysuria [Unknown]
  - Urinary tract infection [Unknown]
  - Abdominal distension [Unknown]
  - Hepatic cancer metastatic [Fatal]
  - Swelling [Unknown]

NARRATIVE: CASE EVENT DATE: 201406
